FAERS Safety Report 4768259-9 (Version None)
Quarter: 2005Q3

REPORT INFORMATION
  Report Type: 
  Country: None (occurrence: None)
  Receive Date: 20050913
  Receipt Date: 20050830
  Transmission Date: 20060218
  Serious: Yes (Life-Threatening, Hospitalization, Other)
  Sender: FDA-Public Use
  Company Number: PHFR2005GB02878

PATIENT
  Age: 73 Year
  Sex: Female

DRUGS (8)
  1. DICLOFENAC SODIUM [Suspect]
  2. FUROSEMIDE [Suspect]
  3. LOSARTAIN(LOSARTAN) [Suspect]
  4. OMEPRAZOLE [Concomitant]
  5. AMINOPHYLLIN [Concomitant]
  6. SYMBICORT TRUBUHALER (BUDESONIDE, FORMOTEROL FUMARATE) [Concomitant]
  7. COMBIVENT [Concomitant]
  8. TRAMADOL HCL [Concomitant]

REACTIONS (4)
  - BASE EXCESS ABNORMAL [None]
  - GLASGOW COMA SCALE ABNORMAL [None]
  - METABOLIC ACIDOSIS [None]
  - RENAL FAILURE [None]
